FAERS Safety Report 20737680 (Version 1)
Quarter: 2022Q2

REPORT INFORMATION
  Report Type: Report from Study
  Country: US (occurrence: US)
  Receive Date: 20220422
  Receipt Date: 20220422
  Transmission Date: 20220721
  Serious: Yes (Death, Disabling, Other)
  Sender: FDA-Public Use
  Company Number: US-BRISTOL-MYERS SQUIBB COMPANY-BMS-2021-022522

PATIENT
  Age: 80 Year
  Sex: Male
  Weight: 79 kg

DRUGS (7)
  1. NIVOLUMAB [Suspect]
     Active Substance: NIVOLUMAB
     Indication: Squamous cell carcinoma
     Dosage: 240 MILLIGRAM, Q2WK
     Route: 042
     Dates: start: 20200512, end: 20200623
  2. SERINE/THREONINE-PROTEIN KINASE 19 [Suspect]
     Active Substance: SERINE/THREONINE-PROTEIN KINASE 19
     Indication: Squamous cell carcinoma
     Dosage: 0.5X10E6 PFU/ML IT, Q2WKHTTPS://LSMVPROD.ARISGLOBAL.COM/LSMV/PAGES/ADVERSEEVENT/ADVERSE_EVENT_NEW_AN
     Route: 036
     Dates: start: 20200428, end: 20200428
  3. SERINE/THREONINE-PROTEIN KINASE 19 [Suspect]
     Active Substance: SERINE/THREONINE-PROTEIN KINASE 19
     Dosage: 0.5X10E7 PFU/ML IT, Q2WK
     Route: 036
     Dates: start: 20200623, end: 20200623
  4. PREDNISONE [Concomitant]
     Active Substance: PREDNISONE
     Indication: Product used for unknown indication
     Dosage: 20 MILLIGRAM
     Route: 065
     Dates: start: 20200223
  5. PREDNISONE [Concomitant]
     Active Substance: PREDNISONE
     Indication: Dyspnoea
     Route: 048
     Dates: start: 20200708
  6. PREDNISONE [Concomitant]
     Active Substance: PREDNISONE
     Route: 048
     Dates: start: 20201201, end: 20210131
  7. OXYGEN [Concomitant]
     Active Substance: OXYGEN
     Indication: Salvage therapy
     Route: 065

REACTIONS (2)
  - Dyspnoea [Recovering/Resolving]
  - Death [Fatal]

NARRATIVE: CASE EVENT DATE: 20200624
